FAERS Safety Report 23499675 (Version 1)
Quarter: 2024Q1

REPORT INFORMATION
  Report Type: Spontaneous
  Country: GB (occurrence: None)
  Receive Date: 20240208
  Receipt Date: 20240208
  Transmission Date: 20240410
  Serious: Yes (Other)
  Sender: FDA-Public Use
  Company Number: 2024A028392

PATIENT
  Age: 56 Year
  Sex: Male
  Weight: 136 kg

DRUGS (11)
  1. DAPAGLIFLOZIN [Suspect]
     Active Substance: DAPAGLIFLOZIN
     Dosage: 10
     Route: 048
     Dates: start: 20210427
  2. ALOGLIPTIN [Concomitant]
     Active Substance: ALOGLIPTIN
     Dosage: 1
     Dates: start: 20210427
  3. AMLODIPINE [Concomitant]
     Active Substance: AMLODIPINE BESYLATE
     Dosage: 1
     Dates: start: 20210427
  4. ATORVASTATIN [Concomitant]
     Active Substance: ATORVASTATIN
     Dosage: 1
     Dates: start: 20210524
  5. CITALOPRAM [Concomitant]
     Active Substance: CITALOPRAM HYDROBROMIDE
     Indication: Depression
     Dosage: IN THE MORNING
     Dates: start: 20210520
  6. DOXAZOSIN [Concomitant]
     Active Substance: DOXAZOSIN MESYLATE
     Dosage: 1
     Dates: start: 20220325
  7. GLICLAZIDE [Concomitant]
     Active Substance: GLICLAZIDE
     Dosage: 2
     Dates: start: 20220524
  8. METFORMIN [Concomitant]
     Active Substance: METFORMIN HYDROCHLORIDE
     Dosage: 2
     Dates: start: 20230120
  9. OMEPRAZOLE [Concomitant]
     Active Substance: OMEPRAZOLE
     Indication: Dyspepsia
     Dosage: 1
     Dates: start: 20201119
  10. RAMIPRIL [Concomitant]
     Active Substance: RAMIPRIL
     Dosage: 1
     Dates: start: 20210427
  11. RYBELSUS [Concomitant]
     Active Substance: SEMAGLUTIDE
     Dosage: 30 MINUTES BEFORE FOOD, DRINK O...

REACTIONS (2)
  - Nocturia [Recovered/Resolved]
  - Incontinence [Unknown]
